FAERS Safety Report 11419256 (Version 1)
Quarter: 2015Q3

REPORT INFORMATION
  Report Type: Spontaneous
  Country: FR (occurrence: FR)
  Receive Date: 20150826
  Receipt Date: 20150826
  Transmission Date: 20151125
  Serious: Yes (Hospitalization, Disabling)
  Sender: FDA-Public Use
  Company Number: PHHY2015FR101623

PATIENT
  Age: 66 Year
  Sex: Male

DRUGS (14)
  1. ELISOR [Concomitant]
     Active Substance: PRAVASTATIN SODIUM
     Indication: ISCHAEMIC HEART DISEASE PROPHYLAXIS
     Dosage: 1 DF, QD
     Route: 065
     Dates: start: 2003, end: 2015
  2. CARDENSIEL [Concomitant]
     Active Substance: BISOPROLOL FUMARATE
     Indication: PRODUCT USED FOR UNKNOWN INDICATION
     Dosage: 1.25 MG, UNK
     Route: 048
     Dates: start: 2003, end: 2015
  3. CELLCEPT [Suspect]
     Active Substance: MYCOPHENOLATE MOFETIL\MYCOPHENOLATE MOFETIL HYDROCHLORIDE
     Indication: PRODUCT USED FOR UNKNOWN INDICATION
     Dosage: UNK
     Route: 065
     Dates: start: 2003, end: 2010
  4. CERTICAN [Suspect]
     Active Substance: EVEROLIMUS
     Dosage: 1.25 MG (0.5 MG IN THE MORNING AND 0.75 MG IN THE EVENING), QD
     Dates: start: 201212
  5. JANUVIA [Concomitant]
     Active Substance: SITAGLIPTIN PHOSPHATE
     Indication: PRODUCT USED FOR UNKNOWN INDICATION
     Dosage: 100 MG, QD
     Route: 048
     Dates: start: 2008, end: 2015
  6. ARANESP [Concomitant]
     Active Substance: DARBEPOETIN ALFA
     Indication: PRODUCT USED FOR UNKNOWN INDICATION
     Dosage: UNK
     Route: 065
     Dates: start: 201209
  7. PREVISCAN [Concomitant]
     Active Substance: FLUINDIONE
     Indication: THROMBOSIS PROPHYLAXIS
     Dosage: 20 MG, 1 DF QD
     Route: 048
     Dates: start: 200308, end: 2015
  8. NOVONORM [Concomitant]
     Active Substance: REPAGLINIDE
     Indication: PRODUCT USED FOR UNKNOWN INDICATION
     Dosage: 2 MG, TID
     Route: 048
     Dates: start: 201205, end: 2015
  9. TRIATEC [Concomitant]
     Active Substance: RAMIPRIL
     Indication: HYPERTENSION
     Dosage: 1 DF, QD
     Route: 048
     Dates: start: 2013, end: 2015
  10. EUPRESSYL [Concomitant]
     Active Substance: URAPIDIL
     Indication: HYPERTENSION
     Dosage: 1 DF, QD
     Route: 048
     Dates: start: 2003, end: 2013
  11. BIPRETERAX [Concomitant]
     Active Substance: INDAPAMIDE\PERINDOPRIL
     Indication: HYPERTENSION
     Dosage: 1 DF, QD
     Route: 048
     Dates: start: 2014, end: 2015
  12. NEORAL [Suspect]
     Active Substance: CYCLOSPORINE
     Indication: HEART TRANSPLANT
     Dosage: 1 DF (25 MG), BID
     Route: 048
     Dates: start: 2003
  13. CERTICAN [Suspect]
     Active Substance: EVEROLIMUS
     Indication: HEART TRANSPLANT
     Dosage: 1 DF (0.75 MG), BID
     Route: 048
     Dates: start: 2010
  14. GLUCOPHAGE [Concomitant]
     Active Substance: METFORMIN HYDROCHLORIDE
     Indication: DIABETES MELLITUS
     Dosage: 850 MG, BID
     Route: 065
     Dates: start: 2008, end: 201205

REACTIONS (3)
  - Chronic kidney disease [Recovered/Resolved with Sequelae]
  - Nephrogenic anaemia [Recovered/Resolved]
  - Nephropathy [Recovered/Resolved with Sequelae]

NARRATIVE: CASE EVENT DATE: 2010
